FAERS Safety Report 13181686 (Version 1)
Quarter: 2017Q1

REPORT INFORMATION
  Report Type: Spontaneous
  Country: US (occurrence: US)
  Receive Date: 20170202
  Receipt Date: 20170202
  Transmission Date: 20170428
  Serious: Yes (Hospitalization, Other)
  Sender: FDA-Public Use
  Company Number: US-009507513-1701USA013031

PATIENT
  Age: 21 Year
  Sex: Female
  Weight: 65.76 kg

DRUGS (2)
  1. IMPLANON [Suspect]
     Active Substance: ETONOGESTREL
     Indication: MENSTRUAL CYCLE MANAGEMENT
     Dosage: 1 DF, 3 YEAR IMPNAT  IN LEFT ARM
     Route: 059
  2. IMPLANON [Suspect]
     Active Substance: ETONOGESTREL
     Indication: CONTRACEPTION

REACTIONS (6)
  - Weight increased [Unknown]
  - Incorrect drug administration duration [Unknown]
  - Loss of consciousness [Unknown]
  - Product use issue [Unknown]
  - Seizure [Unknown]
  - Miliaria [Not Recovered/Not Resolved]

NARRATIVE: CASE EVENT DATE: 20140817
